FAERS Safety Report 6241510-4 (Version None)
Quarter: 2009Q2

REPORT INFORMATION
  Report Type: 
  Country: None (occurrence: None)
  Receive Date: 20090623
  Receipt Date: 20031121
  Transmission Date: 20091009
  Serious: Yes (Hospitalization, Other)
  Sender: FDA-Public Use
  Company Number: IL-ROCHE-352294

PATIENT
  Sex: Male
  Weight: 120 kg

DRUGS (39)
  1. MYCOPHENOLATE MOFETIL [Suspect]
     Route: 048
     Dates: start: 20031104
  2. MYCOPHENOLATE MOFETIL [Suspect]
     Route: 048
     Dates: start: 20050203
  3. DACLIZUMAB [Suspect]
     Route: 042
     Dates: start: 20031104, end: 20031104
  4. DACLIZUMAB [Suspect]
     Route: 042
     Dates: start: 20031117
  5. TACROLIMUS [Suspect]
     Route: 048
     Dates: start: 20031104
  6. TACROLIMUS [Suspect]
     Route: 048
     Dates: start: 20031106
  7. TACROLIMUS [Suspect]
     Route: 048
     Dates: start: 20031109, end: 20031109
  8. TACROLIMUS [Suspect]
     Route: 048
     Dates: start: 20031110
  9. TACROLIMUS [Suspect]
     Route: 048
     Dates: start: 20031119
  10. TACROLIMUS [Suspect]
     Route: 048
     Dates: start: 20031202
  11. TACROLIMUS [Suspect]
     Route: 048
     Dates: start: 20031208
  12. TACROLIMUS [Suspect]
     Route: 048
     Dates: start: 20050203
  13. TACROLIMUS [Suspect]
     Route: 048
     Dates: start: 20050307
  14. TACROLIMUS [Suspect]
     Route: 048
     Dates: start: 20060626
  15. SOLU-MEDROL [Suspect]
     Route: 042
     Dates: start: 20031105, end: 20031106
  16. PREDNISONE [Suspect]
     Route: 048
     Dates: start: 20031106
  17. PREDNISONE [Suspect]
     Route: 048
     Dates: start: 20031117
  18. PREDNISONE [Suspect]
     Route: 048
     Dates: start: 20040308
  19. PREDNISONE [Suspect]
     Route: 048
     Dates: start: 20040506
  20. PREDNISONE [Suspect]
     Route: 048
     Dates: start: 20040826
  21. PREDNISONE [Suspect]
     Route: 048
     Dates: start: 20050203
  22. RANITIDINE [Concomitant]
     Route: 042
     Dates: start: 20031104, end: 20031107
  23. HEPARIN [Concomitant]
     Route: 058
     Dates: start: 20031105, end: 20031114
  24. COTRIMOXAZOLE [Concomitant]
     Route: 048
     Dates: start: 20031105
  25. ATENOLOL [Concomitant]
     Route: 048
     Dates: start: 20031106
  26. ATENOLOL [Concomitant]
     Route: 048
     Dates: start: 20031109
  27. ATENOLOL [Concomitant]
     Route: 048
     Dates: start: 20031124
  28. ATENOLOL [Concomitant]
     Route: 048
     Dates: start: 20031211
  29. AMLODIPINE [Concomitant]
     Route: 048
     Dates: start: 20031109
  30. DOXAZOSIN MESYLATE [Concomitant]
     Route: 048
     Dates: start: 20031107
  31. DOXAZOSIN MESYLATE [Concomitant]
     Route: 048
     Dates: start: 20031110
  32. CALCIUM GLUCONATE [Concomitant]
     Route: 042
     Dates: start: 20031106
  33. COUMADIN [Concomitant]
     Route: 048
     Dates: start: 20031211
  34. COUMADIN [Concomitant]
     Route: 048
     Dates: start: 20031216
  35. COUMADIN [Concomitant]
     Route: 048
     Dates: start: 20040506
  36. KAYEXALATE [Concomitant]
     Route: 048
     Dates: start: 20031106
  37. KAYEXALATE [Concomitant]
     Route: 048
     Dates: start: 20031108, end: 20031111
  38. METHYLDOPA [Concomitant]
     Route: 048
     Dates: start: 20031204, end: 20031208
  39. NIFEDIPINE [Concomitant]
     Route: 048
     Dates: start: 20031108, end: 20031109

REACTIONS (2)
  - DEEP VEIN THROMBOSIS [None]
  - HYPERKALAEMIA [None]
